FAERS Safety Report 23693716 (Version 1)
Quarter: 2024Q2

REPORT INFORMATION
  Report Type: Other
  Country: US (occurrence: US)
  Receive Date: 20240401
  Receipt Date: 20240401
  Transmission Date: 20240716
  Serious: No
  Sender: FDA-Public Use
  Company Number: US-TEVA-VS-3150098

PATIENT
  Age: 70 Year
  Sex: Female

DRUGS (2)
  1. AUSTEDO [Suspect]
     Active Substance: DEUTETRABENAZINE
     Indication: Tardive dyskinesia
     Dosage: ONCE A DAY.
     Route: 048
  2. AUSTEDO [Suspect]
     Active Substance: DEUTETRABENAZINE
     Indication: Tardive dyskinesia
     Route: 048

REACTIONS (9)
  - Therapy change [Unknown]
  - Tremor [Unknown]
  - Chills [Unknown]
  - Mastication disorder [Unknown]
  - Inappropriate schedule of product administration [Unknown]
  - Muscle twitching [Recovered/Resolved]
  - Dyspnoea [Unknown]
  - Dyspnoea [Unknown]
  - Asthma [Unknown]
